FAERS Safety Report 10757354 (Version 2)
Quarter: 2015Q2

REPORT INFORMATION
  Report Type: Spontaneous
  Country: ES (occurrence: None)
  Receive Date: 20150130
  Receipt Date: 20150424
  Transmission Date: 20150821
  Serious: Yes (Other)
  Sender: FDA-Public Use
  Company Number: ES2014GSK008553

PATIENT
  Sex: Female
  Weight: 62 kg

DRUGS (6)
  1. MARAVIROC [Suspect]
     Active Substance: MARAVIROC
     Indication: HIV INFECTION
     Dates: start: 20071128
  2. ETRAVIRINE [Concomitant]
     Active Substance: ETRAVIRINE
  3. RITONAVIR. [Concomitant]
     Active Substance: RITONAVIR
  4. LAMIVUDINE. [Concomitant]
     Active Substance: LAMIVUDINE
  5. DARUNAVIR [Concomitant]
     Active Substance: DARUNAVIR
  6. RALTEGRAVIR [Concomitant]
     Active Substance: RALTEGRAVIR

REACTIONS (1)
  - Anal squamous cell carcinoma [None]

NARRATIVE: CASE EVENT DATE: 20140928
